FAERS Safety Report 7290502-5 (Version None)
Quarter: 2011Q1

REPORT INFORMATION
  Report Type: 
  Country: None (occurrence: None)
  Receive Date: 20110209
  Receipt Date: 20110209
  Transmission Date: 20110831
  Serious: Yes (Other)
  Sender: FDA-Public Use
  Company Number: None

PATIENT
  Age: 50 Year
  Sex: Female
  Weight: 68.0396 kg

DRUGS (1)
  1. VALACYCLOVIR [Suspect]
     Indication: HERPES VIRUS INFECTION
     Dosage: 500 MG 2X PO
     Route: 048
     Dates: start: 20110126, end: 20110129

REACTIONS (9)
  - MIDDLE INSOMNIA [None]
  - DIZZINESS [None]
  - FEELING HOT [None]
  - FATIGUE [None]
  - NAUSEA [None]
  - HEADACHE [None]
  - STRABISMUS [None]
  - CARDIAC DISORDER [None]
  - PRODUCT SUBSTITUTION ISSUE [None]
